FAERS Safety Report 4888531-1 (Version None)
Quarter: 2005Q4

REPORT INFORMATION
  Report Type: 
  Country: None (occurrence: None)
  Receive Date: 20051215
  Receipt Date: 20050310
  Transmission Date: 20060501
  Serious: Yes (Other)
  Sender: FDA-Public Use
  Company Number: 2005000691

PATIENT
  Age: 56 Year
  Sex: Male
  Weight: 70.3075 kg

DRUGS (4)
  1. BEXTRA [Suspect]
     Indication: ARTHRITIS
     Dosage: 20 MG (20 MG,1 IN 1 D),ORAL
     Route: 048
     Dates: start: 20040101, end: 20041201
  2. ROFECOXIB [Suspect]
     Indication: ILL-DEFINED DISORDER
     Dates: start: 20050124
  3. PERINDOPRIL ERBUMINE (PERINDOPRIL ERBUMINE) [Concomitant]
  4. VERAPAMIL [Concomitant]

REACTIONS (2)
  - DYSPNOEA [None]
  - PALPITATIONS [None]
